FAERS Safety Report 18159481 (Version 1)
Quarter: 2020Q3

REPORT INFORMATION
  Report Type: Spontaneous
  Country: US (occurrence: US)
  Receive Date: 20200817
  Receipt Date: 20200817
  Transmission Date: 20201103
  Serious: No
  Sender: FDA-Public Use
  Company Number: US-BAYER-2020-170779

PATIENT
  Sex: Female

DRUGS (1)
  1. ALEVE [Suspect]
     Active Substance: NAPROXEN SODIUM
     Indication: PAIN
     Dosage: 2 DF
     Route: 048

REACTIONS (6)
  - Abdominal pain upper [Unknown]
  - Dyspepsia [Unknown]
  - Pain in extremity [Unknown]
  - Feeling abnormal [Unknown]
  - Vision blurred [Unknown]
  - Somnolence [Unknown]
